FAERS Safety Report 13081741 (Version 3)
Quarter: 2017Q1

REPORT INFORMATION
  Report Type: Spontaneous
  Country: US (occurrence: US)
  Receive Date: 20170103
  Receipt Date: 20170217
  Transmission Date: 20170428
  Serious: No
  Sender: FDA-Public Use
  Company Number: US-PFIZER INC-2016592213

PATIENT
  Age: 64 Year
  Sex: Female

DRUGS (3)
  1. IBRANCE [Suspect]
     Active Substance: PALBOCICLIB
     Dosage: UNK
     Dates: start: 20161206
  2. LETROZOLE. [Suspect]
     Active Substance: LETROZOLE
     Dosage: UNK
  3. IBRANCE [Suspect]
     Active Substance: PALBOCICLIB
     Dosage: 75 MG, DAILY
     Dates: start: 20161208

REACTIONS (9)
  - Dry skin [Unknown]
  - Fatigue [Unknown]
  - Depression [Unknown]
  - Pruritus [Unknown]
  - Myalgia [Unknown]
  - Diarrhoea [Unknown]
  - Skin fissures [Unknown]
  - Constipation [Unknown]
  - Pollakiuria [Unknown]

NARRATIVE: CASE EVENT DATE: 201612
